APPROVED DRUG PRODUCT: EXTENDED PHENYTOIN SODIUM
Active Ingredient: PHENYTOIN SODIUM
Strength: 100MG EXTENDED
Dosage Form/Route: CAPSULE;ORAL
Application: A213834 | Product #001
Applicant: UNICHEM LABORATORIES LTD
Approved: Oct 13, 2022 | RLD: No | RS: No | Type: DISCN